FAERS Safety Report 24061078 (Version 1)
Quarter: 2024Q3

REPORT INFORMATION
  Report Type: Spontaneous
  Country: US (occurrence: None)
  Receive Date: 20240705
  Receipt Date: 20240705
  Transmission Date: 20241017
  Serious: Yes (Death, Hospitalization)
  Sender: Public
  Company Number: None

PATIENT
  Age: 56 Year
  Sex: Male

DRUGS (9)
  1. OPSUMIT [Suspect]
     Active Substance: MACITENTAN
     Indication: Pulmonary hypertension
     Dosage: FREQUENCY : DAILY;?
     Route: 048
     Dates: start: 20200106, end: 20240420
  2. FUROSEMIDE [Suspect]
     Active Substance: FUROSEMIDE
  3. APIXABAN [Concomitant]
     Active Substance: APIXABAN
  4. PANTOPRAZOLE [Concomitant]
     Active Substance: PANTOPRAZOLE
  5. BUMETANIDE [Concomitant]
     Active Substance: BUMETANIDE
  6. NORCO [Concomitant]
     Active Substance: ACETAMINOPHEN\HYDROCODONE BITARTRATE
  7. ATORVASTATIN [Concomitant]
     Active Substance: ATORVASTATIN
  8. FERROUS SULFATE [Concomitant]
     Active Substance: FERROUS SULFATE
  9. oxygen intranasal [Concomitant]

REACTIONS (13)
  - Dyspnoea [None]
  - Hypervolaemia [None]
  - Renal impairment [None]
  - Dialysis [None]
  - Lethargy [None]
  - Hypoxia [None]
  - Lung consolidation [None]
  - Pneumonia [None]
  - Cardiac failure [None]
  - Pulmonary oedema [None]
  - Right ventricular failure [None]
  - Ventilation perfusion mismatch [None]
  - Terminal state [None]

NARRATIVE: CASE EVENT DATE: 20240318
